FAERS Safety Report 14682250 (Version 2)
Quarter: 2018Q2

REPORT INFORMATION
  Report Type: Spontaneous
  Country: US (occurrence: US)
  Receive Date: 20180326
  Receipt Date: 20180405
  Transmission Date: 20180711
  Serious: Yes (Hospitalization)
  Sender: FDA-Public Use
  Company Number: US-BIOGEN-2018BI00546739

PATIENT
  Age: 63 Year
  Sex: Female

DRUGS (1)
  1. TECFIDERA [Suspect]
     Active Substance: DIMETHYL FUMARATE
     Indication: MULTIPLE SCLEROSIS
     Dosage: MAINTENANCE DOSE
     Route: 048
     Dates: end: 201803

REACTIONS (5)
  - Urinary tract infection [Not Recovered/Not Resolved]
  - Erythema [Unknown]
  - Mobility decreased [Unknown]
  - Localised infection [Unknown]
  - Dry skin [Unknown]

NARRATIVE: CASE EVENT DATE: 201803
